FAERS Safety Report 24143289 (Version 1)
Quarter: 2024Q3

REPORT INFORMATION
  Report Type: Report from Study
  Country: US (occurrence: US)
  Receive Date: 20240726
  Receipt Date: 20240726
  Transmission Date: 20241017
  Serious: Yes (Death, Life-Threatening, Hospitalization, Other)
  Sender: JAZZ
  Company Number: US-JAZZ PHARMACEUTICALS-2024-US-011300

PATIENT
  Age: 51 Year
  Sex: Female

DRUGS (1)
  1. VYXEOS [Suspect]
     Active Substance: CYTARABINE\DAUNORUBICIN
     Indication: Product used for unknown indication

REACTIONS (13)
  - Respiratory failure [Fatal]
  - Pneumonia [Not Recovered/Not Resolved]
  - Pulmonary oedema [Not Recovered/Not Resolved]
  - Febrile neutropenia [Recovered/Resolved]
  - Febrile neutropenia [Recovered/Resolved]
  - Deep vein thrombosis [Recovered/Resolved]
  - Dyspnoea [Not Recovered/Not Resolved]
  - Immune reconstitution inflammatory syndrome [Recovered/Resolved with Sequelae]
  - Diarrhoea [Recovered/Resolved]
  - Cellulitis [Unknown]
  - Ventricular extrasystoles [Recovered/Resolved]
  - Ventricular extrasystoles [Recovered/Resolved]
  - Ventricular extrasystoles [Recovered/Resolved]

NARRATIVE: CASE EVENT DATE: 20231108
